FAERS Safety Report 25904814 (Version 1)
Quarter: 2025Q4

REPORT INFORMATION
  Report Type: Spontaneous
  Country: US (occurrence: US)
  Receive Date: 20251010
  Receipt Date: 20251010
  Transmission Date: 20260117
  Serious: No
  Sender: TAKEDA
  Company Number: US-TAKEDA-2025TUS088993

PATIENT
  Age: 52 Year
  Sex: Male
  Weight: 77 kg

DRUGS (8)
  1. HUMAN IMMUNOGLOBULIN G [Suspect]
     Active Substance: HUMAN IMMUNOGLOBULIN G
     Indication: BK virus infection
     Dosage: UNK UNK, MONTHLY
     Dates: start: 202411
  2. ATORVASTATIN [Concomitant]
     Active Substance: ATORVASTATIN
  3. EVEROLIMUS [Concomitant]
     Active Substance: EVEROLIMUS
  4. PREDNISONE [Concomitant]
     Active Substance: PREDNISONE
  5. LISINOPRIL [Concomitant]
     Active Substance: LISINOPRIL
  6. TACROLIMUS [Concomitant]
     Active Substance: TACROLIMUS
  7. ALLOPURINOL [Concomitant]
     Active Substance: ALLOPURINOL
  8. ASPIRIN [Concomitant]
     Active Substance: ASPIRIN
     Dosage: 81 MILLIGRAM

REACTIONS (2)
  - Decreased immune responsiveness [Unknown]
  - Insurance issue [Unknown]
